FAERS Safety Report 8199837-5 (Version None)
Quarter: 2012Q1

REPORT INFORMATION
  Report Type: 
  Country: None (occurrence: None)
  Receive Date: 20120312
  Receipt Date: 20120307
  Transmission Date: 20120608
  Serious: No
  Sender: FDA-Public Use
  Company Number: US-BIOGENIDEC-2011BI007435

PATIENT
  Sex: Female

DRUGS (1)
  1. TYSABRI [Suspect]
     Indication: MULTIPLE SCLEROSIS
     Route: 042
     Dates: start: 20110221

REACTIONS (10)
  - PAIN IN EXTREMITY [None]
  - STRESS [None]
  - HEADACHE [None]
  - FATIGUE [None]
  - DIZZINESS [None]
  - CONTUSION [None]
  - ASTHENIA [None]
  - VOMITING [None]
  - LETHARGY [None]
  - PRURITUS [None]
